FAERS Safety Report 8241103-3 (Version None)
Quarter: 2012Q1

REPORT INFORMATION
  Report Type: 
  Country: None (occurrence: None)
  Receive Date: 20120328
  Receipt Date: 20120322
  Transmission Date: 20120608
  Serious: Yes (Death)
  Sender: FDA-Public Use
  Company Number: US-GLAXOSMITHKLINE-A0971378A

PATIENT
  Age: 67 Year
  Sex: Female

DRUGS (4)
  1. NORVASC [Concomitant]
  2. VOTRIENT [Suspect]
     Indication: RENAL CANCER
     Dosage: 200MG PER DAY
     Route: 048
     Dates: start: 20111230
  3. ALPRAZOLAM [Concomitant]
  4. ACYCLOVIR [Concomitant]

REACTIONS (1)
  - DEATH [None]
